FAERS Safety Report 15721902 (Version 4)
Quarter: 2019Q1

REPORT INFORMATION
  Report Type: Spontaneous
  Country: GB (occurrence: GB)
  Receive Date: 20181214
  Receipt Date: 20190131
  Transmission Date: 20190417
  Serious: Yes (Hospitalization, Other)
  Sender: FDA-Public Use
  Company Number: GB-AUROBINDO-AUR-APL-2018-060090

PATIENT

DRUGS (1)
  1. ALENDRONIC ACID TABLETS [Suspect]
     Active Substance: ALENDRONIC ACID
     Indication: OSTEOPOROSIS
     Dosage: 70 MILLIGRAM, EVERY WEEK
     Route: 048
     Dates: start: 2000

REACTIONS (9)
  - Osteonecrosis of jaw [Unknown]
  - Trismus [Unknown]
  - Jaw fracture [Unknown]
  - Erythema [Unknown]
  - Pathological fracture [Unknown]
  - Fracture debridement [Recovered/Resolved]
  - Swelling [Unknown]
  - Purulent discharge [Unknown]
  - Facial pain [Unknown]

NARRATIVE: CASE EVENT DATE: 200705
